FAERS Safety Report 13406736 (Version 2)
Quarter: 2017Q2

REPORT INFORMATION
  Report Type: Spontaneous
  Country: US (occurrence: US)
  Receive Date: 20170405
  Receipt Date: 20170411
  Transmission Date: 20170830
  Serious: No
  Sender: FDA-Public Use
  Company Number: US-SHIRE-US201707501

PATIENT
  Age: 6 Decade
  Sex: Male

DRUGS (3)
  1. NATPARA (PARATHYROID HORMONE) [Suspect]
     Active Substance: PARATHYROID HORMONE
     Indication: HYPOPARATHYROIDISM
     Dosage: 50 ?G, UNKNOWN
     Route: 058
     Dates: start: 2016
  2. NATPARA (PARATHYROID HORMONE) [Suspect]
     Active Substance: PARATHYROID HORMONE
     Dosage: 75 ?G, UNKNOWN
     Route: 058
  3. NATPARA (PARATHYROID HORMONE) [Suspect]
     Active Substance: PARATHYROID HORMONE
     Dosage: 100 ?G, UNKNOWN
     Route: 058

REACTIONS (3)
  - Blood calcium abnormal [Unknown]
  - Blood calcium decreased [Unknown]
  - Drug ineffective [Unknown]
